FAERS Safety Report 4786909-8 (Version None)
Quarter: 2005Q3

REPORT INFORMATION
  Report Type: 
  Country: None (occurrence: None)
  Receive Date: 20050930
  Receipt Date: 20050916
  Transmission Date: 20060218
  Serious: Yes (Death)
  Sender: FDA-Public Use
  Company Number: 2005S1009248

PATIENT
  Age: 44 Year
  Sex: Female

DRUGS (9)
  1. CLOZAPINE [Suspect]
     Indication: SCHIZOPHRENIA
     Dosage: SEE IMAGE
     Route: 048
     Dates: start: 20040701, end: 20050921
  2. CLOZAPINE [Suspect]
     Indication: SCHIZOPHRENIA
     Dosage: SEE IMAGE
     Route: 048
     Dates: start: 20040701, end: 20050921
  3. TOPIRAMATE [Concomitant]
  4. LEVOFLOXACIN [Concomitant]
  5. GUAIFENESIN [Concomitant]
  6. FLUOXETINE HYDROCHLORIDE [Concomitant]
  7. BENZTROPINE MESYLATE [Concomitant]
  8. HALOPERIDOL [Concomitant]
  9. CLONAZEPAM [Concomitant]

REACTIONS (1)
  - DEATH [None]
